FAERS Safety Report 7685815-9 (Version None)
Quarter: 2011Q3

REPORT INFORMATION
  Report Type: 
  Country: None (occurrence: None)
  Receive Date: 20110815
  Receipt Date: 20110815
  Transmission Date: 20111222
  Serious: No
  Sender: FDA-Public Use
  Company Number: None

PATIENT
  Age: 39 Year
  Sex: Male
  Weight: 86.182 kg

DRUGS (1)
  1. NEXIUM [Suspect]
     Indication: GASTROOESOPHAGEAL REFLUX DISEASE
     Dosage: 40 MG
     Route: 048
     Dates: start: 20020101, end: 20110814

REACTIONS (4)
  - BLOOD MAGNESIUM DECREASED [None]
  - VITAMIN B1 DECREASED [None]
  - AMNESIA [None]
  - COGNITIVE DISORDER [None]
